FAERS Safety Report 14833225 (Version 3)
Quarter: 2018Q2

REPORT INFORMATION
  Report Type: Spontaneous
  Country: BG (occurrence: BG)
  Receive Date: 20180501
  Receipt Date: 20180511
  Transmission Date: 20180711
  Serious: Yes (Hospitalization, Other)
  Sender: FDA-Public Use
  Company Number: BG-BAYER-2018-078394

PATIENT
  Age: 65 Year
  Sex: Male

DRUGS (3)
  1. NEXAVAR [Suspect]
     Active Substance: SORAFENIB
     Indication: HEPATOCELLULAR CARCINOMA
     Dosage: 400 MG, DAILY
     Dates: start: 20150513, end: 20170128
  2. ASPIRIN. [Suspect]
     Active Substance: ASPIRIN
     Dosage: UNK
     Dates: end: 20150507
  3. NEXAVAR [Suspect]
     Active Substance: SORAFENIB
     Indication: HEPATOCELLULAR CARCINOMA
     Dosage: 800 MG, DAILY
     Dates: start: 20150402, end: 20150507

REACTIONS (6)
  - Asthenia [None]
  - Varices oesophageal [None]
  - Melaena [None]
  - Thrombocytopenia [None]
  - Hepatocellular carcinoma [None]
  - Metastases to spleen [None]

NARRATIVE: CASE EVENT DATE: 20150507
